FAERS Safety Report 14182428 (Version 7)
Quarter: 2020Q3

REPORT INFORMATION
  Report Type: Spontaneous
  Country: IT (occurrence: IT)
  Receive Date: 20171113
  Receipt Date: 20200723
  Transmission Date: 20201102
  Serious: Yes (Hospitalization)
  Sender: FDA-Public Use
  Company Number: PHHY2017IT166920

PATIENT
  Age: 57 Year
  Sex: Female

DRUGS (3)
  1. CITALOPRAM [Suspect]
     Active Substance: CITALOPRAM HYDROBROMIDE
     Indication: DRUG ABUSE
     Dosage: 1 DF, ONCE/SINGLE (TOTAL)
     Route: 048
     Dates: start: 20171105, end: 20171105
  2. RIVOTRIL [Suspect]
     Active Substance: CLONAZEPAM
     Indication: DRUG ABUSE
     Dosage: 40 ML, TOTAL (2.5 MG/ML ORAL DROPS SOLUTION, 10 ML BOTTLE)
     Route: 048
     Dates: start: 20171105, end: 20171105
  3. ZOLPIDEM TARTRATE. [Suspect]
     Active Substance: ZOLPIDEM TARTRATE
     Indication: DRUG ABUSE
     Dosage: 54 DF, ONCE/SINGLE (TOTAL)
     Route: 048
     Dates: start: 20171105, end: 20171105

REACTIONS (3)
  - Intentional self-injury [Unknown]
  - Drug abuse [Unknown]
  - Alcohol abuse [Unknown]

NARRATIVE: CASE EVENT DATE: 20171105
